FAERS Safety Report 12893584 (Version 1)
Quarter: 2016Q4

REPORT INFORMATION
  Report Type: Spontaneous
  Country: US (occurrence: US)
  Receive Date: 20161027
  Receipt Date: 20161027
  Transmission Date: 20170207
  Serious: No
  Sender: FDA-Public Use
  Company Number: None

PATIENT
  Age: 45 Year
  Sex: Female
  Weight: 65.25 kg

DRUGS (7)
  1. MULTI VITAMIN [Concomitant]
     Active Substance: VITAMINS
  2. GABAPENTIN. [Concomitant]
     Active Substance: GABAPENTIN
  3. BACTRIM [Concomitant]
     Active Substance: SULFAMETHOXAZOLE\TRIMETHOPRIM
  4. CALCIUM AND VITAMIN D [Concomitant]
     Active Substance: CALCIUM\VITAMIN D
  5. FISH OIL [Concomitant]
     Active Substance: FISH OIL
  6. MOVE FREE ULTRA [Concomitant]
  7. ZITHROMAX [Suspect]
     Active Substance: AZITHROMYCIN DIHYDRATE
     Indication: PNEUMONIA
     Dosage: ?          QUANTITY:6 TABLET(S);OTHER FREQUENCY:2X DAY 1, THEN 1X;?
     Route: 048
     Dates: start: 20160819, end: 20160823

REACTIONS (6)
  - Ear discomfort [None]
  - Crepitations [None]
  - Discomfort [None]
  - Deafness unilateral [None]
  - Inflammation [None]
  - Tinnitus [None]

NARRATIVE: CASE EVENT DATE: 20160819
